FAERS Safety Report 9296921 (Version 2)
Quarter: 2013Q3

REPORT INFORMATION
  Report Type: Spontaneous
  Country: FR (occurrence: FR)
  Receive Date: 20130518
  Receipt Date: 20130709
  Transmission Date: 20140515
  Serious: Yes (Hospitalization)
  Sender: FDA-Public Use
  Company Number: FR-ROCHE-1225999

PATIENT
  Sex: Female

DRUGS (5)
  1. ZELBORAF [Suspect]
     Indication: PRODUCT USED FOR UNKNOWN INDICATION
     Route: 065
  2. DURAGESIC [Concomitant]
     Indication: PAIN
     Dosage: PATCH
     Route: 065
  3. ATARAX (FRANCE) [Concomitant]
     Route: 048
  4. LEVOTHYROX [Concomitant]
     Indication: HYPOTHYROIDISM
     Route: 048
  5. PROZAC [Concomitant]
     Route: 048

REACTIONS (1)
  - Pleuropericarditis [Recovering/Resolving]
